FAERS Safety Report 14689791 (Version 1)
Quarter: 2018Q1

REPORT INFORMATION
  Report Type: Spontaneous
  Country: ES (occurrence: ES)
  Receive Date: 20180328
  Receipt Date: 20180328
  Transmission Date: 20180509
  Serious: Yes (Death, Hospitalization)
  Sender: FDA-Public Use
  Company Number: ES-TEVA-2018-ES-871927

PATIENT
  Age: 21 Year

DRUGS (2)
  1. FLUDARABINA [Suspect]
     Active Substance: FLUDARABINE PHOSPHATE
     Dosage: 40 MG/M2 I.V.
     Route: 042
     Dates: start: 20170127
  2. BUSULFAN. [Suspect]
     Active Substance: BUSULFAN
     Dosage: 3,2 MG/KG I.V.
     Route: 042
     Dates: start: 20170127

REACTIONS (4)
  - Acute kidney injury [Fatal]
  - Urinary tract obstruction [Fatal]
  - Shock haemorrhagic [Recovered/Resolved]
  - Cystitis haemorrhagic [Fatal]

NARRATIVE: CASE EVENT DATE: 20170210
